FAERS Safety Report 14126199 (Version 1)
Quarter: 2017Q4

REPORT INFORMATION
  Report Type: Spontaneous
  Country: FR (occurrence: FR)
  Receive Date: 20171025
  Receipt Date: 20171025
  Transmission Date: 20180321
  Serious: Yes (Hospitalization)
  Sender: FDA-Public Use
  Company Number: FR-BAYER-2017-200089

PATIENT
  Age: 23 Year
  Sex: Female

DRUGS (1)
  1. MIRENA [Suspect]
     Active Substance: LEVONORGESTREL
     Indication: CONTRACEPTION
     Dosage: 20 MCG/24HR, CONT
     Route: 015
     Dates: start: 20110211, end: 20171004

REACTIONS (5)
  - Asthenia [Not Recovered/Not Resolved]
  - Cerebellar syndrome [Recovered/Resolved]
  - Bone pain [Recovered/Resolved]
  - Pain [Not Recovered/Not Resolved]
  - Trismus [Recovered/Resolved]

NARRATIVE: CASE EVENT DATE: 2012
